FAERS Safety Report 21049960 (Version 6)
Quarter: 2023Q1

REPORT INFORMATION
  Report Type: Spontaneous
  Country: JP (occurrence: JP)
  Receive Date: 20220706
  Receipt Date: 20230104
  Transmission Date: 20230417
  Serious: Yes (Death, Hospitalization, Other)
  Sender: FDA-Public Use
  Company Number: JP-MSD-M2022-25859

PATIENT
  Age: 9 Decade
  Sex: Male

DRUGS (6)
  1. KEYTRUDA [Suspect]
     Active Substance: PEMBROLIZUMAB
     Indication: Oesophageal cancer metastatic
     Dosage: 200 MILLIGRAM, Q3W
     Route: 041
     Dates: start: 20220114, end: 202203
  2. KEYTRUDA [Suspect]
     Active Substance: PEMBROLIZUMAB
     Dosage: 200 MILLIGRAM, Q3W
     Route: 041
     Dates: start: 20220810
  3. CISPLATIN [Suspect]
     Active Substance: CISPLATIN
     Indication: Oesophageal cancer metastatic
     Dosage: 80 MILLIGRAM/SQ. METER, Q3W
     Route: 041
     Dates: start: 20220114, end: 202203
  4. CISPLATIN [Suspect]
     Active Substance: CISPLATIN
     Dosage: 80 MILLIGRAM/SQ. METER, Q3W
     Route: 041
     Dates: start: 20220810
  5. FLUOROURACIL [Suspect]
     Active Substance: FLUOROURACIL
     Indication: Oesophageal cancer metastatic
     Dosage: 800 MILLIGRAM/SQ. METER, 5 TIMES EVERY 3 WEEKS
     Route: 041
     Dates: start: 20220114, end: 202203
  6. FLUOROURACIL [Suspect]
     Active Substance: FLUOROURACIL
     Dosage: 800 MILLIGRAM/SQ. METER, 5 TIMES EVERY 3 WEEKS
     Route: 041
     Dates: start: 20220810

REACTIONS (9)
  - Loss of consciousness [Recovered/Resolved]
  - Decubitus ulcer [Recovered/Resolved]
  - Coronavirus infection [Unknown]
  - Immune-mediated hypothyroidism [Recovering/Resolving]
  - Malignant neoplasm progression [Fatal]
  - Goitre [Unknown]
  - Skin exfoliation [Unknown]
  - Dehydration [Recovered/Resolved]
  - Liver disorder [Unknown]

NARRATIVE: CASE EVENT DATE: 20220101
